FAERS Safety Report 4518682-2 (Version None)
Quarter: 2004Q4

REPORT INFORMATION
  Report Type: 
  Country: None (occurrence: None)
  Receive Date: 20041201
  Receipt Date: 20041125
  Transmission Date: 20050328
  Serious: Yes (Hospitalization)
  Sender: FDA-Public Use
  Company Number: DEWYE236026NOV04

PATIENT
  Age: 36 Year
  Sex: Male

DRUGS (10)
  1. SIROLIMUS (SIROLIMUS, TABLET, )) [Suspect]
     Indication: PROPHYLAXIS AGAINST TRANSPLANT REJECTION
     Dosage: 5 MG ORAL
     Route: 048
     Dates: start: 20041027, end: 20041117
  2. MYCOPHENOLATE MOFETIL (MYCOPHENOLATE MOFETIL) [Concomitant]
  3. PANTOZOL (PANTOPRAZOLE SODIUM) [Concomitant]
  4. AMPHO-MORONAL (AMPHOTERICIN B) [Concomitant]
  5. MUCOSOLVAN (AMBROXOL HYDROCHLORIDE) [Concomitant]
  6. NEPHROTRANS (SODIUM BICARBONATE) [Concomitant]
  7. CALCIUM (CALCIUM) [Concomitant]
  8. KEPINOL (SULFAMETHOXAZOLE/TRIMETHOPRIM) [Concomitant]
  9. HEPARIN [Concomitant]
  10. ANTIHYPERTENSIVE AGENT (ANTIHYPERTENSIVE AGENT) [Concomitant]

REACTIONS (4)
  - BLOOD CREATININE INCREASED [None]
  - BLOOD URIC ACID INCREASED [None]
  - KIDNEY TRANSPLANT REJECTION [None]
  - LABORATORY TEST ABNORMAL [None]
